FAERS Safety Report 5134807-2 (Version None)
Quarter: 2006Q4

REPORT INFORMATION
  Report Type: 
  Country: None (occurrence: None)
  Receive Date: 20061025
  Receipt Date: 20060913
  Transmission Date: 20070319
  Serious: Yes (Disabling)
  Sender: FDA-Public Use
  Company Number: ZA-SANOFI-SYNTHELABO-A01200607600

PATIENT
  Sex: Male

DRUGS (9)
  1. DAONIL [Concomitant]
     Indication: CEREBROVASCULAR ACCIDENT
     Dosage: 5 MG
     Route: 048
  2. DAONIL [Concomitant]
     Indication: DIABETES MELLITUS
     Dosage: 5 MG
     Route: 048
  3. METFORMIN HCL [Concomitant]
     Indication: CEREBROVASCULAR ACCIDENT
     Dosage: 50 MG
     Route: 048
  4. METFORMIN HCL [Concomitant]
     Indication: DIABETES MELLITUS
     Dosage: 50 MG
     Route: 048
  5. CO-DIOVAN [Concomitant]
     Indication: CEREBROVASCULAR ACCIDENT
     Dosage: 160 MG/12.5 MG DAILY
     Route: 048
  6. CO-DIOVAN [Concomitant]
     Indication: HYPERTENSION
     Dosage: 160 MG/12.5 MG DAILY
     Route: 048
  7. NORVASC [Concomitant]
     Indication: CEREBROVASCULAR ACCIDENT
     Dosage: 10 MG
     Route: 048
  8. NORVASC [Concomitant]
     Indication: HYPERTENSION
     Dosage: 10 MG
     Route: 048
  9. IVEDAL [Suspect]
     Indication: INSOMNIA
     Dosage: 10 MG
     Route: 048
     Dates: start: 20060717, end: 20060725

REACTIONS (1)
  - MUSCLE SPASMS [None]
